FAERS Safety Report 5092546-0 (Version None)
Quarter: 2006Q3

REPORT INFORMATION
  Report Type: 
  Country: None (occurrence: None)
  Receive Date: 20060828
  Receipt Date: 20060816
  Transmission Date: 20061208
  Serious: Yes (Other)
  Sender: FDA-Public Use
  Company Number: 2006100268

PATIENT
  Age: 37 Year
  Sex: Female

DRUGS (1)
  1. DILANTIN [Suspect]
     Indication: CONVULSION
     Dosage: 300 MG (300 MG, 1 IN 1 D)

REACTIONS (2)
  - INTERVERTEBRAL DISC PROTRUSION [None]
  - SKIN ULCER [None]
